FAERS Safety Report 7438187-9 (Version None)
Quarter: 2011Q2

REPORT INFORMATION
  Report Type: 
  Country: None (occurrence: None)
  Receive Date: 20110419
  Receipt Date: 20110404
  Transmission Date: 20111010
  Serious: Yes (Death, Hospitalization)
  Sender: FDA-Public Use
  Company Number: 027043

PATIENT
  Sex: Male
  Weight: 75 kg

DRUGS (40)
  1. PERENTEROL /00243701/ [Concomitant]
  2. HYDROCHLOROTHIAZIDE [Concomitant]
  3. BRICANYL [Concomitant]
  4. LASIX [Concomitant]
  5. INVANZ [Concomitant]
  6. THIAMINE HCL [Concomitant]
  7. NEXIUM [Concomitant]
  8. AMLODIPINE BESYLATE [Concomitant]
  9. LEVOFLOXACIN [Concomitant]
  10. PREDNISOLONE /00016201/ [Concomitant]
  11. MCP /00041901/ [Concomitant]
  12. KALIUM /00031402/ [Concomitant]
  13. SCOPODERM /000087021/ [Concomitant]
  14. FENTANYL [Concomitant]
  15. SODIUM CHLORIDE [Concomitant]
  16. INSULIN RAPITARD [Concomitant]
  17. HEPARIN [Concomitant]
  18. KEPPRA [Concomitant]
  19. ATACAND PULS [Concomitant]
  20. METFORMIN [Concomitant]
  21. SIOFOR [Concomitant]
  22. CLONT /00012501/ [Concomitant]
  23. HEPARIN SODIUM [Concomitant]
  24. THEOPHYLLINE [Concomitant]
  25. PCM [Concomitant]
  26. VANCOMYCIN [Concomitant]
  27. LACOSAMIDE [Suspect]
     Indication: EPILEPSY
     Dosage: (50 MG QD, EVENING ORAL), (100 MG BID, MORNING,EVENING ORAL), (100 MG QD ORAL)
     Route: 048
     Dates: start: 20101001, end: 20110106
  28. LACOSAMIDE [Suspect]
     Indication: EPILEPSY
     Dosage: (50 MG QD, EVENING ORAL), (100 MG BID, MORNING,EVENING ORAL), (100 MG QD ORAL)
     Route: 048
     Dates: start: 20101025, end: 20101025
  29. LACOSAMIDE [Suspect]
     Indication: EPILEPSY
     Dosage: (50 MG QD, EVENING ORAL), (100 MG BID, MORNING,EVENING ORAL), (100 MG QD ORAL)
     Route: 048
     Dates: start: 20101026
  30. FOSAMAX [Concomitant]
  31. POTASSIUM [Concomitant]
  32. SPIRIVA [Concomitant]
  33. EBRANTIL /00631801/ [Concomitant]
  34. TAVOR /00273201/ [Concomitant]
  35. FUNGIZID [Concomitant]
  36. SEROQUEL [Concomitant]
  37. ACETYLCYSTEINE [Concomitant]
  38. SULTANOL /00031402/ [Concomitant]
  39. FLUTICASONE PROPIONATE [Concomitant]
  40. PROPOFOL [Concomitant]

REACTIONS (41)
  - GENERAL PHYSICAL HEALTH DETERIORATION [None]
  - HAEMOGLOBIN DECREASED [None]
  - CONFUSIONAL STATE [None]
  - MOTOR DYSFUNCTION [None]
  - JOINT RANGE OF MOTION DECREASED [None]
  - DYSSTASIA [None]
  - GASTRITIS [None]
  - DIARRHOEA [None]
  - RED CELL DISTRIBUTION WIDTH INCREASED [None]
  - MUSCULOSKELETAL PAIN [None]
  - DECREASED VIBRATORY SENSE [None]
  - FALL [None]
  - GASTROENTERITIS CLOSTRIDIAL [None]
  - RESPIRATORY FAILURE [None]
  - FEAR [None]
  - COGNITIVE DISORDER [None]
  - ABASIA [None]
  - DISORIENTATION [None]
  - PNEUMONIA ASPIRATION [None]
  - DYSPHAGIA [None]
  - DIABETES MELLITUS [None]
  - BLOOD SODIUM DECREASED [None]
  - WHITE BLOOD CELL COUNT INCREASED [None]
  - FATIGUE [None]
  - ASTHENIA [None]
  - RED BLOOD CELL COUNT DECREASED [None]
  - C-REACTIVE PROTEIN INCREASED [None]
  - DISTURBANCE IN ATTENTION [None]
  - PSYCHOTIC DISORDER [None]
  - DYSPEPSIA [None]
  - MUSCULAR WEAKNESS [None]
  - RESTLESSNESS [None]
  - PARANOIA [None]
  - SOMNOLENCE [None]
  - BLOOD POTASSIUM INCREASED [None]
  - DEHYDRATION [None]
  - BLOOD CREATINE PHOSPHOKINASE MB INCREASED [None]
  - ACUTE PRERENAL FAILURE [None]
  - WHITE BLOOD CELLS URINE POSITIVE [None]
  - SENSORY DISTURBANCE [None]
  - AGITATION [None]
